FAERS Safety Report 10285133 (Version 1)
Quarter: 2014Q3

REPORT INFORMATION
  Report Type: Spontaneous
  Country: US (occurrence: None)
  Receive Date: 20140703
  Receipt Date: 20140703
  Transmission Date: 20150326
  Serious: Yes (Hospitalization)
  Sender: FDA-Public Use
  Company Number: None

PATIENT
  Age: 11 Year
  Sex: Male
  Weight: 28 kg

DRUGS (1)
  1. ONCASPAR [Suspect]
     Active Substance: PEGASPARGASE
     Indication: LEUKAEMIA
     Route: 042
     Dates: start: 20140630

REACTIONS (4)
  - Anaphylactic reaction [None]
  - Swelling [None]
  - Flushing [None]
  - Rash [None]

NARRATIVE: CASE EVENT DATE: 20140630
